FAERS Safety Report 23546552 (Version 1)
Quarter: 2024Q1

REPORT INFORMATION
  Report Type: Spontaneous
  Country: US (occurrence: US)
  Receive Date: 20240221
  Receipt Date: 20240221
  Transmission Date: 20240410
  Serious: No
  Sender: FDA-Public Use
  Company Number: CID000000000042521

PATIENT
  Age: 70 Year
  Sex: Male

DRUGS (1)
  1. AJOVY [Suspect]
     Active Substance: FREMANEZUMAB-VFRM
     Indication: Migraine with aura
     Dosage: STRENGTH: 225 MG/ 1.5 ML
     Route: 065
     Dates: end: 202311

REACTIONS (1)
  - Drug ineffective [Unknown]
